FAERS Safety Report 21146793 (Version 1)
Quarter: 2022Q3

REPORT INFORMATION
  Report Type: Spontaneous
  Country: FR (occurrence: FR)
  Receive Date: 20220729
  Receipt Date: 20220729
  Transmission Date: 20221027
  Serious: Yes (Hospitalization)
  Sender: FDA-Public Use
  Company Number: None

PATIENT
  Age: 22 Year
  Sex: Male
  Weight: 75 kg

DRUGS (7)
  1. NEORAL [Interacting]
     Active Substance: CYCLOSPORINE
     Indication: Prophylaxis against transplant rejection
     Dosage: 110 MG, QD
     Route: 048
     Dates: start: 20170610, end: 20220626
  2. NEORAL [Interacting]
     Active Substance: CYCLOSPORINE
     Dosage: 10 MG, QD
     Route: 048
     Dates: start: 20220627, end: 20220627
  3. RITUXIMAB [Interacting]
     Active Substance: RITUXIMAB
     Indication: Focal segmental glomerulosclerosis
     Dosage: 740 MG, QD
     Route: 042
     Dates: start: 20211120, end: 20211120
  4. LANSOPRAZOLE [Interacting]
     Active Substance: LANSOPRAZOLE
     Indication: Prophylaxis against gastrointestinal ulcer
     Dosage: 2 DOSAGE FORM, QD
     Route: 048
     Dates: start: 20220625, end: 20220625
  5. LANSOPRAZOLE [Interacting]
     Active Substance: LANSOPRAZOLE
     Dosage: 1 DOSAGE FORM, QD
     Route: 048
     Dates: start: 20220626, end: 20220626
  6. CELLCEPT [Interacting]
     Active Substance: MYCOPHENOLATE MOFETIL
     Indication: Prophylaxis against transplant rejection
     Dosage: 1000 MG, QD
     Route: 048
     Dates: start: 20170610, end: 20220625
  7. CELLCEPT [Interacting]
     Active Substance: MYCOPHENOLATE MOFETIL
     Dosage: 500 MG, QD
     Route: 048
     Dates: start: 20220626, end: 20220626

REACTIONS (1)
  - Agranulocytosis [Recovered/Resolved]

NARRATIVE: CASE EVENT DATE: 20220626
